FAERS Safety Report 4685348-8 (Version None)
Quarter: 2005Q2

REPORT INFORMATION
  Report Type: 
  Country: None (occurrence: None)
  Receive Date: 20050608
  Receipt Date: 20050505
  Transmission Date: 20051028
  Serious: Yes (Death)
  Sender: FDA-Public Use
  Company Number: GB-MERCK-0505GBR00058

PATIENT
  Sex: Female

DRUGS (4)
  1. FOSAMAX [Suspect]
     Route: 048
  2. IPRATROPIUM BROMIDE [Suspect]
     Route: 055
  3. ALBUTEROL [Suspect]
     Route: 055
  4. PREDNISOLONE [Suspect]
     Route: 065

REACTIONS (3)
  - CARDIAC FAILURE [None]
  - CHRONIC OBSTRUCTIVE AIRWAYS DISEASE EXACERBATED [None]
  - CHRONIC OBSTRUCTIVE PULMONARY DISEASE [None]
